FAERS Safety Report 8026577-5 (Version None)
Quarter: 2012Q1

REPORT INFORMATION
  Report Type: 
  Country: None (occurrence: None)
  Receive Date: 20120106
  Receipt Date: 20111229
  Transmission Date: 20120608
  Serious: Yes (Hospitalization)
  Sender: FDA-Public Use
  Company Number: US-BIOGENIDEC-2011BI038348

PATIENT
  Sex: Female
  Weight: 84 kg

DRUGS (35)
  1. AVONEX [Suspect]
     Route: 030
     Dates: end: 20030101
  2. CELEBREX [Concomitant]
     Route: 048
  3. MIRALAX [Concomitant]
  4. BONIVA [Concomitant]
     Route: 048
  5. SYNALAR [Concomitant]
     Indication: RASH
     Route: 061
  6. AVONEX [Suspect]
     Indication: MULTIPLE SCLEROSIS
     Route: 030
     Dates: start: 20111001
  7. CALCIUM ACETATE [Concomitant]
     Route: 048
  8. SINEMET [Concomitant]
     Route: 048
  9. ZYRTEC [Concomitant]
  10. NEURONTIN [Concomitant]
     Indication: NEURALGIA
     Route: 048
  11. ALLEGRA [Concomitant]
     Route: 048
  12. RECLAST [Concomitant]
     Dates: start: 20081201
  13. FISH OIL [Concomitant]
     Route: 048
  14. ASPIRIN [Concomitant]
     Route: 048
  15. PREMARIN [Concomitant]
     Route: 067
     Dates: end: 20030101
  16. LOTRISONE [Concomitant]
  17. NYSTATIN [Concomitant]
  18. MULTI-VITAMIN [Concomitant]
     Route: 048
  19. VITAMIN C [Concomitant]
     Route: 048
  20. ALPHAGAN P [Concomitant]
  21. COMPAZINE [Concomitant]
     Route: 054
  22. HYDROCODONE BITARTRATE AND ACETAMINOPHEN [Concomitant]
     Indication: PAIN
     Route: 048
  23. NITROFURANTOIN [Concomitant]
     Route: 048
  24. BACLOFEN [Concomitant]
  25. BACTROBAN [Concomitant]
     Indication: DECUBITUS ULCER
  26. BACTROBAN [Concomitant]
     Route: 061
  27. VITAMIN D [Concomitant]
     Route: 048
  28. RHINOCORT [Concomitant]
     Route: 045
  29. VITAMIN E [Concomitant]
     Route: 048
  30. FLEXERIL [Concomitant]
  31. FOSAMAX [Concomitant]
  32. CYCLOBENZAPRINE [Concomitant]
     Indication: MUSCLE SPASMS
     Route: 048
  33. KETOCONAZOLE [Concomitant]
     Indication: FUNGAL SKIN INFECTION
     Route: 061
  34. AVONEX [Suspect]
     Route: 030
     Dates: start: 20030101, end: 20110101
  35. TIMOLOL MALEATE [Concomitant]

REACTIONS (10)
  - WOUND DEHISCENCE [None]
  - SPINAL OSTEOARTHRITIS [None]
  - POSTOPERATIVE WOUND INFECTION [None]
  - LUMBAR SPINAL STENOSIS [None]
  - SPINAL FRACTURE [None]
  - SPINAL COMPRESSION FRACTURE [None]
  - INCISION SITE HAEMORRHAGE [None]
  - PROCEDURAL COMPLICATION [None]
  - SCOLIOSIS [None]
  - SPONDYLOLISTHESIS [None]
